FAERS Safety Report 8541300 (Version 2)
Quarter: 2014Q1

REPORT INFORMATION
  Report Type: Spontaneous
  Country: US (occurrence: US)
  Receive Date: 20120502
  Receipt Date: 20140303
  Transmission Date: 20141002
  Serious: Yes (Death, Hospitalization)
  Sender: FDA-Public Use
  Company Number: US-GLAXOSMITHKLINE-A0861814A

PATIENT
  Age: 61 Year
  Sex: Female
  Weight: 94.5 kg

DRUGS (1)
  1. AVANDIA [Suspect]
     Indication: DIABETES MELLITUS
     Dosage: 4MG PER DAY
     Route: 048
     Dates: start: 200006, end: 200703

REACTIONS (7)
  - Sepsis [Fatal]
  - Peripheral vascular disorder [Fatal]
  - Wound infection [Fatal]
  - Leg amputation [Fatal]
  - Myocardial infarction [Unknown]
  - Cardiac failure congestive [Unknown]
  - Depression [Unknown]
